FAERS Safety Report 5269978-0 (Version None)
Quarter: 2007Q1

REPORT INFORMATION
  Report Type: 
  Country: None (occurrence: None)
  Receive Date: 20070320
  Receipt Date: 20070315
  Transmission Date: 20070707
  Serious: Yes (Other)
  Sender: FDA-Public Use
  Company Number: US-GLAXOSMITHKLINE-A0636326A

PATIENT

DRUGS (2)
  1. BEXXAR [Suspect]
     Indication: NON-HODGKIN'S LYMPHOMA
     Route: 042
     Dates: start: 20070101, end: 20070101
  2. NO CONCURRENT MEDICATION [Concomitant]

REACTIONS (2)
  - INFECTION [None]
  - LYMPHOMA [None]
